FAERS Safety Report 7294394-X (Version None)
Quarter: 2011Q1

REPORT INFORMATION
  Report Type: 
  Country: None (occurrence: None)
  Receive Date: 20110215
  Receipt Date: 20110121
  Transmission Date: 20110831
  Serious: Yes (Other)
  Sender: FDA-Public Use
  Company Number: JP-AMGEN-JPNSP2011007792

PATIENT
  Age: 65 Year

DRUGS (17)
  1. REGPARA [Suspect]
     Dosage: 50 MG, UNK
     Route: 048
     Dates: start: 20101007, end: 20101110
  2. EPOGIN [Concomitant]
     Dosage: 0.5 ML, QD
     Dates: start: 20100810, end: 20101111
  3. DOPS [Concomitant]
     Dosage: 100 MG, QD
     Route: 048
  4. MUCOSTA [Concomitant]
     Dosage: 100 MG, TID
     Route: 048
  5. PURSENNID                          /00142207/ [Concomitant]
     Dosage: 12 MG, QD
     Route: 048
  6. KETOPROFEN [Concomitant]
     Dosage: 20 MG, QD
  7. REUSAL S [Concomitant]
     Dosage: 20 ML, QD
     Dates: start: 20100810, end: 20101111
  8. REGPARA [Suspect]
     Indication: HYPERPARATHYROIDISM SECONDARY
     Dosage: 25 MG, QD
     Route: 048
     Dates: start: 20100708, end: 20101006
  9. REGPARA [Suspect]
     Dosage: 75 MG, UNK
     Route: 048
     Dates: start: 20101111, end: 20101117
  10. FOSRENOL [Concomitant]
     Dosage: 500 MG, TID
     Route: 048
  11. DEPAS [Concomitant]
     Dosage: 0.5 MG, BID
     Route: 048
  12. GLUFAST [Concomitant]
     Dosage: 5 MG, QD
     Route: 048
  13. AMOBAN [Concomitant]
     Dosage: 7.5 MG, QD
     Route: 048
  14. TAKEPRON [Concomitant]
     Dosage: 15 MG, QD
     Route: 048
  15. GLUFAST [Concomitant]
     Dosage: 7.5 MG, UNK
     Route: 048
  16. ROHYPNOL [Concomitant]
     Dosage: 1 MG, QD
     Route: 048
  17. NEUTROGIN [Concomitant]
     Dosage: 3 ML, QD
     Dates: start: 20100810, end: 20101111

REACTIONS (4)
  - ALTERED STATE OF CONSCIOUSNESS [None]
  - HYPOAESTHESIA ORAL [None]
  - DYSPNOEA [None]
  - HYPOCALCAEMIA [None]
